FAERS Safety Report 21959846 (Version 2)
Quarter: 2023Q1

REPORT INFORMATION
  Report Type: Spontaneous
  Country: HR (occurrence: HR)
  Receive Date: 20230206
  Receipt Date: 20230228
  Transmission Date: 20230418
  Serious: Yes (Other)
  Sender: FDA-Public Use
  Company Number: HR-BAYER-2023P007711

PATIENT
  Age: 78 Year
  Sex: Male
  Weight: 93 kg

DRUGS (11)
  1. XARELTO [Suspect]
     Active Substance: RIVAROXABAN
     Indication: Product used for unknown indication
     Dosage: 2.5 MG, BID
     Route: 048
     Dates: start: 201702
  2. ASPIRIN [Concomitant]
     Active Substance: ASPIRIN
     Dosage: UNK
     Dates: start: 201702
  3. TRIMETAZIDINE [Concomitant]
     Active Substance: TRIMETAZIDINE
     Dosage: 75 MG, BID
  4. BISOPROLOL [Concomitant]
     Active Substance: BISOPROLOL
     Dosage: 5 MG
  5. EPLERENONE [Concomitant]
     Active Substance: EPLERENONE
     Dosage: 25 MG
  6. EMPAGLIFLOZIN [Concomitant]
     Active Substance: EMPAGLIFLOZIN
     Dosage: 10 MG
  7. TORSEMIDE [Concomitant]
     Active Substance: TORSEMIDE
     Dosage: 5 MG
  8. ROSUVASTATIN/EZETIMIBE TEVA [Concomitant]
     Dosage: 40/10 MG
  9. PERINDOPRIL/AMLODIPIN TEVA [Concomitant]
  10. RABEPRAZOLE [Concomitant]
     Active Substance: RABEPRAZOLE
     Dosage: 10 MG
  11. ALIROCUMAB [Concomitant]
     Active Substance: ALIROCUMAB
     Indication: Pulmonary hypertension

REACTIONS (2)
  - Brain stem stroke [Recovered/Resolved]
  - Hemiparesis [Recovered/Resolved]

NARRATIVE: CASE EVENT DATE: 20190101
